FAERS Safety Report 4916707-3 (Version None)
Quarter: 2006Q1

REPORT INFORMATION
  Report Type: 
  Country: None (occurrence: None)
  Receive Date: 20060214
  Receipt Date: 20060202
  Transmission Date: 20060701
  Serious: Yes (Hospitalization)
  Sender: FDA-Public Use
  Company Number: 2006-CZ-00593

PATIENT
  Age: 78 Year
  Sex: Male

DRUGS (18)
  1. METRONIDAZOLE [Suspect]
     Indication: CLOSTRIDIAL INFECTION
     Dosage: 1200 MG, 3 IN 1 D, ORAL
     Route: 048
     Dates: start: 20060109, end: 20060113
  2. ACETYLSALICYLIC ACID SRT [Concomitant]
  3. CLOPIDOGREL [Concomitant]
  4. DIGOXIN [Concomitant]
  5. LANSOPRAZOLE [Concomitant]
  6. SIMVASTATIN [Concomitant]
  7. CANDESARTAN [Concomitant]
  8. DILTIAZEM HYDROCHLORIDE [Concomitant]
  9. ALLOPURINOL [Concomitant]
  10. BUMETANIDE [Concomitant]
  11. ACYCLOVIR [Concomitant]
  12. CHLORPHENAMINE [Concomitant]
  13. ACETAMINOPHEN [Concomitant]
  14. HYDROCORTISONE [Concomitant]
  15. ALEMTUZUMAB [Concomitant]
  16. BACTRIM [Concomitant]
  17. BENZYDAMINE HYDROCHLORIDE [Concomitant]
  18. SALBUTAMOL [Concomitant]

REACTIONS (3)
  - HALLUCINATION [None]
  - INSOMNIA [None]
  - RESTLESSNESS [None]
